FAERS Safety Report 6669225-9 (Version None)
Quarter: 2010Q2

REPORT INFORMATION
  Report Type: 
  Country: None (occurrence: None)
  Receive Date: 20100406
  Receipt Date: 20100329
  Transmission Date: 20101027
  Serious: Yes (Hospitalization)
  Sender: FDA-Public Use
  Company Number: US-SANOFI-AVENTIS-2010SA019162

PATIENT
  Age: 68 Year
  Sex: Female

DRUGS (4)
  1. OPTICLICK [Suspect]
     Indication: TYPE 1 DIABETES MELLITUS
     Dates: start: 20070101
  2. LANTUS [Suspect]
     Indication: TYPE 1 DIABETES MELLITUS
     Dosage: DOSE:31 UNIT(S)
     Route: 058
  3. LANTUS [Suspect]
     Route: 058
     Dates: start: 20040101
  4. DRUG USED IN DIABETES [Concomitant]

REACTIONS (2)
  - INJECTION SITE HAEMATOMA [None]
  - INTESTINAL ISCHAEMIA [None]
